FAERS Safety Report 6457888-2 (Version None)
Quarter: 2009Q4

REPORT INFORMATION
  Report Type: 
  Country: None (occurrence: None)
  Receive Date: 20091125
  Receipt Date: 20091120
  Transmission Date: 20100525
  Serious: Yes (Life-Threatening, Hospitalization)
  Sender: FDA-Public Use
  Company Number: ZA-SANOFI-AVENTIS-A01200910463

PATIENT
  Age: 28 Year
  Sex: Female

DRUGS (8)
  1. OXALIPLATIN [Suspect]
     Indication: RECTAL CANCER
     Route: 041
     Dates: start: 20090722, end: 20090722
  2. OXALIPLATIN [Suspect]
     Route: 041
     Dates: start: 20091007, end: 20091007
  3. FLUOROURACIL [Concomitant]
     Route: 065
     Dates: start: 20090722, end: 20090722
  4. FLUOROURACIL [Concomitant]
     Route: 065
     Dates: start: 20091007, end: 20091007
  5. LEUCOVORIN CALCIUM [Concomitant]
     Route: 065
     Dates: start: 20090722, end: 20090722
  6. LEUCOVORIN CALCIUM [Concomitant]
     Route: 065
     Dates: start: 20091007, end: 20091007
  7. DECASONE [Concomitant]
     Route: 065
     Dates: start: 20090722, end: 20091007
  8. ZOFRAN [Concomitant]
     Route: 065
     Dates: start: 20090722, end: 20091007

REACTIONS (2)
  - ACUTE ABDOMEN [None]
  - HAEMORRHAGE [None]
